FAERS Safety Report 21082434 (Version 1)
Quarter: 2022Q3

REPORT INFORMATION
  Report Type: Spontaneous
  Country: US (occurrence: US)
  Receive Date: 20220714
  Receipt Date: 20220714
  Transmission Date: 20221027
  Serious: Yes (Other)
  Sender: FDA-Public Use
  Company Number: US-BoehringerIngelheim-2022-BI-181144

PATIENT
  Sex: Female
  Weight: 182 kg

DRUGS (1)
  1. JARDIANCE [Suspect]
     Active Substance: EMPAGLIFLOZIN
     Indication: Type 2 diabetes mellitus

REACTIONS (5)
  - Renal failure [Unknown]
  - Hepatic cirrhosis [Unknown]
  - Cardiomegaly [Unknown]
  - Ill-defined disorder [Unknown]
  - Peripheral swelling [Unknown]
